FAERS Safety Report 16091158 (Version 1)
Quarter: 2019Q1

REPORT INFORMATION
  Report Type: Spontaneous
  Country: ZA (occurrence: ZA)
  Receive Date: 20190319
  Receipt Date: 20190319
  Transmission Date: 20190418
  Serious: Yes (Death, Other)
  Sender: FDA-Public Use
  Company Number: ZA-009507513-1903ZAF006626

PATIENT
  Age: 56 Year
  Sex: Female

DRUGS (13)
  1. BEDAQUILINE [Suspect]
     Active Substance: BEDAQUILINE
     Indication: TUBERCULOSIS
     Dosage: 200 MILLIGRAM, TIW
     Route: 048
     Dates: start: 20181214
  2. IMIPENEM AND CILASTATIN [Suspect]
     Active Substance: CILASTATIN SODIUM\IMIPENEM
     Indication: TUBERCULOSIS
     Dosage: 1.5 GRAM, BID
     Route: 042
     Dates: start: 20181214, end: 20190122
  3. CLOFAZIMINE [Suspect]
     Active Substance: CLOFAZIMINE
     Indication: TUBERCULOSIS
     Dosage: 100 MILLIGRAM, QD
     Route: 048
     Dates: start: 20181214
  4. PAS [Suspect]
     Active Substance: AMINOSALICYLIC ACID
     Indication: TUBERCULOSIS
     Dosage: 8 GRAM, QD
     Route: 048
     Dates: start: 20181214
  5. AUGMENTIN [Suspect]
     Active Substance: AMOXICILLIN\CLAVULANATE POTASSIUM
     Indication: TUBERCULOSIS
     Dosage: 375 MILLIGRAM, BID
     Route: 048
     Dates: start: 20181214
  6. TERIZIDONE [Suspect]
     Active Substance: TERIZIDONE
     Indication: TUBERCULOSIS
     Dosage: 750 MILLIGRAM, QD
     Route: 048
     Dates: start: 20181214
  7. OMEPRAZOLE. [Concomitant]
     Active Substance: OMEPRAZOLE
  8. HYDROCHLOROTHIAZIDE. [Concomitant]
     Active Substance: HYDROCHLOROTHIAZIDE
  9. DELAMANID [Suspect]
     Active Substance: DELAMANID
     Indication: TUBERCULOSIS
     Dosage: 100 MILLIGRAM, BID
     Route: 048
     Dates: start: 20181214
  10. PYRIDOXINE HYDROCHLORIDE. [Concomitant]
     Active Substance: PYRIDOXINE HYDROCHLORIDE
  11. LEVOFLOXACIN. [Suspect]
     Active Substance: LEVOFLOXACIN
     Indication: TUBERCULOSIS
     Dosage: 1 GRAM, QD
     Route: 048
     Dates: start: 20181214
  12. ONDANSETRON [Concomitant]
     Active Substance: ONDANSETRON
  13. LINEZOLID. [Suspect]
     Active Substance: LINEZOLID
     Indication: TUBERCULOSIS
     Dosage: 600 MILLIGRAM, QD
     Route: 048
     Dates: start: 20181214, end: 20190122

REACTIONS (3)
  - Renal impairment [Fatal]
  - Hypokalaemia [Unknown]
  - Bicytopenia [Not Recovered/Not Resolved]

NARRATIVE: CASE EVENT DATE: 20190121
